FAERS Safety Report 20497573 (Version 1)
Quarter: 2022Q1

REPORT INFORMATION
  Report Type: Spontaneous
  Country: IN (occurrence: IN)
  Receive Date: 20220221
  Receipt Date: 20220221
  Transmission Date: 20220423
  Serious: Yes (Death, Hospitalization)
  Sender: FDA-Public Use
  Company Number: IN-STRIDES ARCOLAB LIMITED-2022SP001593

PATIENT
  Age: 11 Year
  Sex: Female
  Weight: 37 kg

DRUGS (8)
  1. TACROLIMUS [Suspect]
     Active Substance: TACROLIMUS
     Indication: Liver transplant
     Dosage: UNK
     Route: 065
  2. MYCOPHENOLATE MOFETIL [Suspect]
     Active Substance: MYCOPHENOLATE MOFETIL
     Indication: Liver transplant
     Dosage: UNK
     Route: 065
  3. METHYLPREDNISOLONE [Suspect]
     Active Substance: METHYLPREDNISOLONE
     Indication: Liver transplant
     Dosage: 2 MILLIGRAM/KILOGRAM
     Route: 042
  4. FENTANYL [Concomitant]
     Active Substance: FENTANYL
     Indication: Product used for unknown indication
     Dosage: UNK
     Route: 065
  5. PROPOFOL [Concomitant]
     Active Substance: PROPOFOL
     Indication: Product used for unknown indication
     Dosage: UNK
     Route: 065
  6. ATRACURIUM [Concomitant]
     Active Substance: ATRACURIUM
     Indication: Product used for unknown indication
     Dosage: UNK
     Route: 065
  7. NOREPINEPHRINE [Concomitant]
     Active Substance: NOREPINEPHRINE
     Indication: Vasopressive therapy
     Dosage: UNK
     Route: 065
  8. VASOPRESSIN [Concomitant]
     Active Substance: VASOPRESSIN
     Indication: Vasopressive therapy
     Dosage: UNK
     Route: 065

REACTIONS (6)
  - COVID-19 [Fatal]
  - Brain herniation [Fatal]
  - Brain death [Fatal]
  - Brain oedema [Fatal]
  - Condition aggravated [Fatal]
  - Pleural effusion [Fatal]
